FAERS Safety Report 12765720 (Version 1)
Quarter: 2016Q3

REPORT INFORMATION
  Report Type: Spontaneous
  Country: US (occurrence: US)
  Receive Date: 20160915
  Receipt Date: 20160915
  Transmission Date: 20161109
  Serious: No
  Sender: FDA-Public Use
  Company Number: None

PATIENT
  Age: 49 Year
  Sex: Female

DRUGS (1)
  1. OCTREOTIDE 100MCG APP [Suspect]
     Active Substance: OCTREOTIDE
     Indication: DIARRHOEA
     Route: 058
     Dates: start: 20160329

REACTIONS (3)
  - Product substitution issue [None]
  - Nausea [None]
  - Malaise [None]

NARRATIVE: CASE EVENT DATE: 20160801
